FAERS Safety Report 10568158 (Version 2)
Quarter: 2014Q4

REPORT INFORMATION
  Report Type: Spontaneous
  Country: DE (occurrence: None)
  Receive Date: 20141104
  Receipt Date: 20141121
  Transmission Date: 20150529
  Serious: No
  Sender: FDA-Public Use
  Company Number: DE-LHC-2014099

PATIENT
  Sex: Male

DRUGS (1)
  1. CONOXIA, INHALATIEGAS 100 % ( OXYGEN) (GAS FOR INHALATION) (VERUM) [Suspect]
     Active Substance: OXYGEN
     Indication: CHRONIC OBSTRUCTIVE PULMONARY DISEASE
     Route: 055
     Dates: start: 20130708

REACTIONS (3)
  - Frostbite [None]
  - Device leakage [None]
  - Device issue [None]

NARRATIVE: CASE EVENT DATE: 201410
